FAERS Safety Report 7065117-4 (Version None)
Quarter: 2010Q4

REPORT INFORMATION
  Report Type: 
  Country: None (occurrence: None)
  Receive Date: 20101027
  Receipt Date: 19930920
  Transmission Date: 20110411
  Serious: Yes (Death)
  Sender: FDA-Public Use
  Company Number: US-ROCHE-930201644002

PATIENT
  Age: 40 Year
  Sex: Male

DRUGS (14)
  1. ROCEPHIN [Suspect]
     Route: 042
     Dates: start: 19930424, end: 19930426
  2. DIAZEPAM [Suspect]
     Route: 048
  3. ZANTAC [Suspect]
     Route: 048
     Dates: start: 19260423, end: 19930426
  4. IBUPROFEN [Suspect]
     Route: 048
     Dates: start: 19930420, end: 19930426
  5. BUSPIRONE HYDROCHLORIDE [Concomitant]
     Route: 065
  6. FERROUS SULFATE [Concomitant]
     Route: 065
  7. HEPARIN [Concomitant]
     Route: 065
  8. ACETAMINOPHEN [Concomitant]
     Route: 065
  9. HYDROXYZINE [Concomitant]
     Route: 065
  10. PROCHLORPERAZINE [Concomitant]
     Route: 065
  11. MAALOX [Concomitant]
     Route: 065
  12. HYDROCORTISONE [Concomitant]
     Route: 065
  13. NYSTATIN [Concomitant]
     Route: 048
  14. TROPICAMIDE [Concomitant]
     Route: 065

REACTIONS (2)
  - AIDS RELATED COMPLICATION [None]
  - THROMBOCYTOPENIA [None]
